FAERS Safety Report 11839229 (Version 1)
Quarter: 2015Q4

REPORT INFORMATION
  Report Type: Spontaneous
  Country: IE (occurrence: IE)
  Receive Date: 20151216
  Receipt Date: 20151216
  Transmission Date: 20160305
  Serious: Yes (Other)
  Sender: FDA-Public Use
  Company Number: IE-JNJFOC-20151207138

PATIENT

DRUGS (2)
  1. PARAETAMOL [Suspect]
     Active Substance: ACETAMINOPHEN
     Route: 065
  2. PARAETAMOL [Suspect]
     Active Substance: ACETAMINOPHEN
     Indication: PRODUCT USED FOR UNKNOWN INDICATION
     Route: 065

REACTIONS (2)
  - Accidental overdose [Unknown]
  - Intentional overdose [Unknown]
